FAERS Safety Report 7265594-X (Version None)
Quarter: 2011Q1

REPORT INFORMATION
  Report Type: 
  Country: None (occurrence: None)
  Receive Date: 20110131
  Receipt Date: 20101215
  Transmission Date: 20110831
  Serious: Yes (Hospitalization)
  Sender: FDA-Public Use
  Company Number: US-BAYER-201024008NA

PATIENT
  Sex: Female
  Weight: 100 kg

DRUGS (17)
  1. YAZ [Suspect]
     Indication: ACNE
     Dosage: UNK UNK, UNK
     Route: 048
     Dates: start: 20070301, end: 20091101
  2. YASMIN [Suspect]
     Indication: PRODUCT USED FOR UNKNOWN INDICATION
     Dosage: UNK UNK, UNK
     Route: 048
  3. CALCIUM [CALCIUM] [Concomitant]
     Indication: SUPPLEMENTATION THERAPY
     Route: 048
  4. YAZ [Suspect]
     Indication: PREMENSTRUAL SYNDROME
  5. PAXIL [Concomitant]
     Indication: ANXIETY
     Dosage: 20 MG, UNK
  6. PRAVACHOL [Concomitant]
     Indication: BLOOD CHOLESTEROL ABNORMAL
     Route: 048
  7. BENTYL [Concomitant]
     Indication: PAIN
     Route: 048
  8. MULTI-VITAMINS [Concomitant]
     Indication: SUPPLEMENTATION THERAPY
     Route: 048
  9. LAMICTAL [Concomitant]
     Indication: CONVULSION
     Dosage: 150 MG, UNK
     Route: 048
  10. RELPAX [Concomitant]
     Indication: MIGRAINE
     Route: 048
  11. EXCEDRIN (MIGRAINE) [Concomitant]
     Indication: MIGRAINE
     Route: 048
  12. FISH OIL [Concomitant]
     Indication: SUPPLEMENTATION THERAPY
     Route: 048
  13. OCELLA [Suspect]
     Indication: PRODUCT USED FOR UNKNOWN INDICATION
     Dosage: UNK UNK, UNK
     Route: 048
  14. SINGULAIR [Concomitant]
     Indication: ASTHMA
     Route: 048
  15. PAXIL [Concomitant]
     Indication: DEPRESSION
  16. NEXIUM [Concomitant]
     Indication: GASTROOESOPHAGEAL REFLUX DISEASE
     Route: 048
  17. YAZ [Suspect]

REACTIONS (5)
  - NAUSEA [None]
  - GALLBLADDER CHOLESTEROLOSIS [None]
  - CHOLECYSTITIS CHRONIC [None]
  - ABDOMINAL PAIN UPPER [None]
  - BILIARY DYSKINESIA [None]
